FAERS Safety Report 6191623-0 (Version None)
Quarter: 2009Q2

REPORT INFORMATION
  Report Type: 
  Country: None (occurrence: None)
  Receive Date: 20090515
  Receipt Date: 20090507
  Transmission Date: 20091009
  Serious: Yes (Other)
  Sender: FDA-Public Use
  Company Number: PHHY2009BG17545

PATIENT
  Age: 77 Year
  Sex: Female

DRUGS (3)
  1. ACLASTA [Suspect]
     Indication: OSTEOPOROSIS POSTMENOPAUSAL
     Dosage: UNK
     Dates: start: 20090408
  2. CALCIUM [Concomitant]
  3. VITAMIN D [Concomitant]

REACTIONS (5)
  - FATIGUE [None]
  - HYPERTHERMIA [None]
  - HYPOTHERMIA [None]
  - PARAESTHESIA [None]
  - SOMNOLENCE [None]
